FAERS Safety Report 8781424 (Version 3)
Quarter: 2012Q4

REPORT INFORMATION
  Report Type: 
  Country: GB (occurrence: GB)
  Receive Date: 20120913
  Receipt Date: 20121016
  Transmission Date: 20130627
  Serious: Yes (Disabling, Other)
  Sender: FDA-Public Use
  Company Number: PHFR2012GB003702

PATIENT
  Sex: Male
  Weight: 75.2 kg

DRUGS (7)
  1. DESFERAL [Suspect]
     Indication: IRON OVERLOAD
     Dosage: 2 g, daily
     Route: 058
     Dates: start: 201003, end: 20120120
  2. LEVOTHYROXINE [Concomitant]
     Indication: THYROID DISORDER
     Dosage: 100 ug, UNK
     Route: 048
  3. RANITIDINE [Concomitant]
     Indication: DYSPEPSIA
     Dosage: 300 mg, UNK
     Route: 048
  4. ASCORBIC ACID [Concomitant]
     Indication: ADJUVANT THERAPY
     Dosage: 200 mg, UNK
     Route: 048
     Dates: start: 201003, end: 20120120
  5. ASPIRIN [Concomitant]
     Indication: CORONARY ARTERY BYPASS
     Dosage: 75 mg, UNK
     Route: 048
  6. QUININE SULPHATE [Concomitant]
     Indication: MUSCLE SPASMS
     Dosage: 200 mg, UNK
     Route: 048
  7. FUROSEMIDE [Concomitant]
     Indication: OEDEMA
     Dosage: 40 mg, UNK
     Route: 048

REACTIONS (3)
  - Retinal toxicity [Not Recovered/Not Resolved]
  - Maculopathy [Not Recovered/Not Resolved]
  - Visual acuity reduced [Not Recovered/Not Resolved]
